FAERS Safety Report 4396411-3 (Version None)
Quarter: 2004Q3

REPORT INFORMATION
  Report Type: 
  Country: None (occurrence: None)
  Receive Date: 20040709
  Receipt Date: 20040628
  Transmission Date: 20050211
  Serious: Yes (Other)
  Sender: FDA-Public Use
  Company Number: HQWYE723928JUN04

PATIENT

DRUGS (1)
  1. CORDARONE [Suspect]

REACTIONS (2)
  - MALIGNANT MELANOMA [None]
  - NEUROPATHY PERIPHERAL [None]
